FAERS Safety Report 9801622 (Version 1)
Quarter: 2014Q1

REPORT INFORMATION
  Report Type: Spontaneous
  Country: ES (occurrence: ES)
  Receive Date: 20140107
  Receipt Date: 20140107
  Transmission Date: 20141002
  Serious: Yes (Other)
  Sender: FDA-Public Use
  Company Number: ES-US-EMD SERONO, INC.-E2B_7260691

PATIENT
  Age: 37 Year
  Sex: Female
  Weight: 59 kg

DRUGS (1)
  1. REBIF [Suspect]
     Indication: MULTIPLE SCLEROSIS
     Dosage: 44 MCG 3 VECES A LA SEMANA
     Route: 058
     Dates: start: 20101217, end: 20130705

REACTIONS (1)
  - Retinal vascular thrombosis [Recovered/Resolved]
